FAERS Safety Report 18834561 (Version 1)
Quarter: 2021Q1

REPORT INFORMATION
  Report Type: Spontaneous
  Country: US (occurrence: US)
  Receive Date: 20210203
  Receipt Date: 20210203
  Transmission Date: 20210419
  Serious: Yes (Life-Threatening, Hospitalization)
  Sender: FDA-Public Use
  Company Number: None

PATIENT
  Age: 44 Year
  Sex: Female
  Weight: 76.5 kg

DRUGS (1)
  1. VENOFER [Suspect]
     Active Substance: IRON SUCROSE
     Indication: ANAEMIA
     Dosage: ?          OTHER FREQUENCY:ONETIME;?
     Route: 041
     Dates: start: 20210127, end: 20210127

REACTIONS (3)
  - Rash [None]
  - Anaphylactic shock [None]
  - Muscular weakness [None]

NARRATIVE: CASE EVENT DATE: 20210127
